FAERS Safety Report 26211408 (Version 1)
Quarter: 2025Q4

REPORT INFORMATION
  Report Type: Spontaneous
  Country: CH (occurrence: CH)
  Receive Date: 20251230
  Receipt Date: 20251230
  Transmission Date: 20260117
  Serious: Yes (Hospitalization, Other)
  Sender: ASTELLAS
  Company Number: None

PATIENT
  Age: 68 Year
  Sex: Male

DRUGS (8)
  1. ENFORTUMAB VEDOTIN [Suspect]
     Active Substance: ENFORTUMAB VEDOTIN
     Indication: Bladder transitional cell carcinoma stage IV
     Dosage: EVERY TWO WEEKS
     Route: 065
     Dates: start: 20250409
  2. ENFORTUMAB VEDOTIN [Suspect]
     Active Substance: ENFORTUMAB VEDOTIN
     Route: 065
     Dates: start: 20250623
  3. PEMBROLIZUMAB [Suspect]
     Active Substance: PEMBROLIZUMAB
     Indication: Bladder transitional cell carcinoma stage IV
     Dosage: EVERY TWO WEEKS
     Route: 065
     Dates: start: 20250409
  4. PEMBROLIZUMAB [Suspect]
     Active Substance: PEMBROLIZUMAB
     Dates: start: 20250721
  5. ASPIRIN [Concomitant]
     Active Substance: ASPIRIN
     Indication: Product used for unknown indication
     Dosage: FREQUENCY TIME 24, 1-0-0-0
     Route: 065
  6. LAMICTAL [Concomitant]
     Active Substance: LAMOTRIGINE
     Indication: Product used for unknown indication
     Dosage: FREQUENCY TIME 12, 1-0-1-0
     Route: 065
  7. TRESIBA [Concomitant]
     Active Substance: INSULIN DEGLUDEC
     Indication: Product used for unknown indication
     Dosage: FREQUENCY TIME 24, 100 E/ML, 20-0-0-0 UI
     Route: 065
  8. TORSEMIDE [Concomitant]
     Active Substance: TORSEMIDE
     Indication: Product used for unknown indication
     Dosage: 10 MG N.N.B.
     Route: 065

REACTIONS (3)
  - Guillain-Barre syndrome [Recovering/Resolving]
  - Nephritis [Unknown]
  - Hepatitis [Unknown]

NARRATIVE: CASE EVENT DATE: 20250101
